FAERS Safety Report 8546611-3 (Version None)
Quarter: 2012Q3

REPORT INFORMATION
  Report Type: 
  Country: None (occurrence: None)
  Receive Date: 20120727
  Receipt Date: 20111230
  Transmission Date: 20120928
  Serious: No
  Sender: FDA-Public Use
  Company Number: US-ASTRAZENECA-2012SE00129

PATIENT
  Age: 79 Year
  Sex: Female
  Weight: 60.3 kg

DRUGS (7)
  1. NEXIUM [Concomitant]
     Indication: DYSPEPSIA
  2. DICYCLOMINE [Concomitant]
     Indication: DYSPEPSIA
  3. LEXAPRO [Concomitant]
     Indication: ANTIDEPRESSANT THERAPY
  4. SEROQUEL [Suspect]
     Indication: SLEEP DISORDER
     Route: 048
  5. NAMENDA [Concomitant]
     Indication: DEMENTIA
  6. LISINOPRIL [Concomitant]
     Indication: BLOOD PRESSURE
  7. ATIVAN [Concomitant]
     Indication: ANXIETY

REACTIONS (2)
  - OFF LABEL USE [None]
  - DEMENTIA [None]
